FAERS Safety Report 25837304 (Version 1)
Quarter: 2025Q3

REPORT INFORMATION
  Report Type: Spontaneous
  Country: US (occurrence: None)
  Receive Date: 20250923
  Receipt Date: 20250923
  Transmission Date: 20251021
  Serious: No
  Sender: FDA-CTU
  Company Number: None

PATIENT
  Sex: Female

DRUGS (1)
  1. ENBREL [Suspect]
     Active Substance: ETANERCEPT
     Indication: Product use issue
     Route: 058
     Dates: start: 20230609

REACTIONS (5)
  - Loss of personal independence in daily activities [None]
  - Pain [None]
  - Drug ineffective [None]
  - Memory impairment [None]
  - Product dose omission in error [None]
